FAERS Safety Report 5370197-8 (Version None)
Quarter: 2007Q2

REPORT INFORMATION
  Report Type: 
  Country: None (occurrence: None)
  Receive Date: 20070626
  Receipt Date: 20070621
  Transmission Date: 20071010
  Serious: Yes (Death, Life-Threatening, Hospitalization)
  Sender: FDA-Public Use
  Company Number: PHBS2007JP05681

PATIENT
  Age: 64 Year
  Sex: Female

DRUGS (2)
  1. NEORAL [Suspect]
     Indication: NEPHROTIC SYNDROME
     Dosage: 60 MG/D
     Route: 048
     Dates: start: 20001101, end: 20060614
  2. PREDNISOLONE [Suspect]
     Indication: NEPHROTIC SYNDROME
     Dosage: 15 MG/D
     Route: 048
     Dates: start: 20001101, end: 20060614

REACTIONS (12)
  - BLISTER [None]
  - CRYPTOCOCCOSIS [None]
  - ERYTHEMA [None]
  - GENERAL PHYSICAL HEALTH DETERIORATION [None]
  - HEPATITIS B [None]
  - NECROSIS [None]
  - PANCREATITIS [None]
  - PNEUMONIA [None]
  - SKIN DISORDER [None]
  - SKIN WARM [None]
  - SWELLING [None]
  - ULCER [None]
